FAERS Safety Report 6087414-1 (Version None)
Quarter: 2009Q1

REPORT INFORMATION
  Report Type: 
  Country: None (occurrence: None)
  Receive Date: 20090223
  Receipt Date: 20090219
  Transmission Date: 20090719
  Serious: Yes (Hospitalization, Other)
  Sender: FDA-Public Use
  Company Number: GB-PURDUE-GBR_2009_0004870

PATIENT
  Age: 60 Year
  Sex: Female

DRUGS (1)
  1. MORPHINE SULFATE [Suspect]
     Indication: ABDOMINAL PAIN UPPER
     Dosage: 550 MG, BID
     Route: 048

REACTIONS (11)
  - AGITATION [None]
  - CONFUSIONAL STATE [None]
  - DEHYDRATION [None]
  - DIARRHOEA [None]
  - FEAR [None]
  - HALLUCINATION, VISUAL [None]
  - MUSCLE TWITCHING [None]
  - MYOCLONUS [None]
  - RENAL FAILURE ACUTE [None]
  - URINARY TRACT INFECTION [None]
  - VOMITING [None]
